FAERS Safety Report 5815743-2 (Version None)
Quarter: 2008Q3

REPORT INFORMATION
  Report Type: 
  Country: None (occurrence: None)
  Receive Date: 20080721
  Receipt Date: 20071112
  Transmission Date: 20090109
  Serious: No
  Sender: FDA-Public Use
  Company Number: US-KINGPHARMUSA00001-K200701466

PATIENT

DRUGS (9)
  1. BICILLIN L-A [Suspect]
     Indication: PHARYNGITIS
     Dosage: 2.4 MILLION UNITS, BIW
     Dates: start: 20071101, end: 20080101
  2. BICILLIN L-A [Suspect]
     Indication: LYME DISEASE
     Dosage: 2.4 MIU, (TWO 1.2 DOSAGE SYRINGES, ONE IN EACH BUTTOCK, QW)
     Route: 030
     Dates: start: 20080101, end: 20080101
  3. PROGESTOGENS AND ESTROGENS IN COMBINATION [Concomitant]
     Indication: HORMONE THERAPY
  4. CYMBALTA [Concomitant]
     Indication: NEURALGIA
  5. OXYCODONE HCL [Concomitant]
     Indication: PAIN
  6. LIPODERM [Concomitant]
     Indication: BREAKTHROUGH PAIN
  7. VITAMIN B-12 [Concomitant]
     Indication: ANAEMIA VITAMIN B12 DEFICIENCY
  8. VITAMIN B-12 [Concomitant]
     Indication: NEURALGIA
  9. DIFLUCAN [Concomitant]
     Indication: FUNGAL INFECTION

REACTIONS (6)
  - ABASIA [None]
  - DISCOMFORT [None]
  - INJECTION SITE PAIN [None]
  - MUSCLE INJURY [None]
  - PAIN [None]
  - PAIN IN EXTREMITY [None]
